FAERS Safety Report 6551186-4 (Version None)
Quarter: 2010Q1

REPORT INFORMATION
  Report Type: 
  Country: None (occurrence: None)
  Receive Date: 20100121
  Receipt Date: 20100115
  Transmission Date: 20100710
  Serious: Yes (Death, Life-Threatening)
  Sender: FDA-Public Use
  Company Number: 2009JP006552

PATIENT
  Age: 58 Year
  Sex: Female
  Weight: 56.8 kg

DRUGS (20)
  1. FUNGUARD (MICAFUNGIN) INJECTION [Suspect]
     Indication: INFECTION PROPHYLAXIS
     Dosage: 50 MG, UID/QD, IV DRIP
     Route: 041
     Dates: start: 20090313, end: 20090322
  2. ALKERAN [Concomitant]
  3. CYCLOPHOSPHAMIDE [Concomitant]
  4. VEPESID [Concomitant]
  5. DECADRON [Concomitant]
  6. UROMITEXAN (MESNA) INJECTION [Concomitant]
  7. NEUTROGIN (LENOGRASTIM) INJECTION [Concomitant]
  8. HAPTOGLOBINS (HAPTOGLOBINS) INJECTION [Concomitant]
  9. SOLU-MEDROL [Concomitant]
  10. MAXIPIME [Concomitant]
  11. HABEKACIN (ARBEKACIN) INJECTION [Concomitant]
  12. FAMOTIDINE [Concomitant]
  13. GASLON N (IRSOGLADINE MALEATE) [Concomitant]
  14. BAKTAR (SULFAMETHOXAZOLE, TRIMETHOPRIM) TABLET [Concomitant]
  15. GARENOXACIN MESYLATE [Concomitant]
  16. URALYT (SOLIDAGO VIRGAUREA) [Concomitant]
  17. DIAMOX [Concomitant]
  18. METHYCOBAL (MECOBALAMIN) [Concomitant]
  19. MIYA BM (CLOSTRIDIUM BUTYRICUM) [Concomitant]
  20. LENDORM [Concomitant]

REACTIONS (6)
  - AGRANULOCYTOSIS [None]
  - BACTERIAL INFECTION [None]
  - BONE MARROW FAILURE [None]
  - MALIGNANT NEOPLASM PROGRESSION [None]
  - NON-HODGKIN'S LYMPHOMA [None]
  - SEPSIS [None]
